FAERS Safety Report 9140290 (Version 1)
Quarter: 2013Q1

REPORT INFORMATION
  Report Type: Spontaneous
  Country: TR (occurrence: TR)
  Receive Date: 20130305
  Receipt Date: 20130305
  Transmission Date: 20140127
  Serious: Yes (Other)
  Sender: FDA-Public Use
  Company Number: TR-PFIZER INC-2013074570

PATIENT
  Age: 67 Year
  Sex: Female

DRUGS (5)
  1. GABAPENTIN [Suspect]
     Indication: TRIGEMINAL NEURALGIA
     Dosage: UNK
  2. CARBAMAZEPINE [Suspect]
     Indication: TRIGEMINAL NEURALGIA
     Dosage: UNK
  3. CARTEOLOL HYDROCHLORIDE [Concomitant]
     Indication: EYE DISORDER
     Dosage: UNK
  4. BRIMONIDINE TARTRATE [Concomitant]
     Indication: EYE DISORDER
     Dosage: UNK
  5. TRAVOPROST [Concomitant]
     Indication: EYE DISORDER
     Dosage: UNK

REACTIONS (1)
  - Intraocular pressure increased [Unknown]
